FAERS Safety Report 24877519 (Version 1)
Quarter: 2025Q1

REPORT INFORMATION
  Report Type: Spontaneous
  Country: ES (occurrence: ES)
  Receive Date: 20250123
  Receipt Date: 20250123
  Transmission Date: 20250408
  Serious: Yes (Other)
  Sender: TEVA
  Company Number: ES-TEVA-VS-3287026

PATIENT
  Age: 48 Year
  Sex: Male

DRUGS (4)
  1. EMTRICITABINE\TENOFOVIR DISOPROXIL [Suspect]
     Active Substance: EMTRICITABINE\TENOFOVIR DISOPROXIL
     Indication: Antiretroviral therapy
     Route: 065
     Dates: start: 20150101, end: 20200128
  2. SYMTUZA [Suspect]
     Active Substance: COBICISTAT\DARUNAVIR\EMTRICITABINE\TENOFOVIR ALAFENAMIDE
     Indication: HIV infection
     Route: 048
     Dates: start: 2020
  3. MAGNESIUM [Interacting]
     Active Substance: MAGNESIUM
     Route: 048
     Dates: start: 20191101, end: 20191210
  4. RALTEGRAVIR POTASSIUM [Interacting]
     Active Substance: RALTEGRAVIR POTASSIUM
     Indication: Antiretroviral therapy
     Route: 048
     Dates: start: 20150101, end: 20200128

REACTIONS (4)
  - Viral load increased [Unknown]
  - Labelled drug-drug interaction medication error [Unknown]
  - Virologic failure [Unknown]
  - Drug interaction [Unknown]

NARRATIVE: CASE EVENT DATE: 20190101
